FAERS Safety Report 15216168 (Version 7)
Quarter: 2022Q4

REPORT INFORMATION
  Report Type: Spontaneous
  Country: FR (occurrence: FR)
  Receive Date: 20180730
  Receipt Date: 20221027
  Transmission Date: 20230112
  Serious: Yes (Other)
  Sender: FDA-Public Use
  Company Number: PHHY2018FR054710

PATIENT
  Age: 25 Year
  Sex: Male
  Weight: 58 kg

DRUGS (37)
  1. CLOFAZIMINE [Suspect]
     Active Substance: CLOFAZIMINE
     Indication: Pulmonary tuberculosis
     Dosage: UNK
     Route: 065
  2. CLOFAZIMINE [Suspect]
     Active Substance: CLOFAZIMINE
     Indication: Antibiotic prophylaxis
     Dosage: DOSAGE FORM: UNSPECIFIED
     Route: 065
     Dates: start: 20150724, end: 20150909
  3. LINEZOLID [Suspect]
     Active Substance: LINEZOLID
     Indication: Pulmonary tuberculosis
     Dosage: 600 MG, QD (DOSAGE FORM: UNSPECIFIED)
     Route: 065
  4. LINEZOLID [Suspect]
     Active Substance: LINEZOLID
     Indication: Antibiotic prophylaxis
     Dosage: 1200 MG, QD (DOSAGE FORM: UNSPECIFIED)
     Route: 065
  5. LEVOFLOXACIN [Suspect]
     Active Substance: LEVOFLOXACIN
     Indication: Antibiotic prophylaxis
     Dosage: 1 G, QD (DOSAGE FORM: UNSPECIFIED)
     Route: 065
  6. LEVOFLOXACIN [Suspect]
     Active Substance: LEVOFLOXACIN
     Dosage: 750 MG, QD (DOSAGE FORM: UNSPECIFIED)
     Route: 065
  7. MOXIFLOXACIN HYDROCHLORIDE [Suspect]
     Active Substance: MOXIFLOXACIN HYDROCHLORIDE
     Indication: Antibiotic prophylaxis
     Dosage: 800 MG, QD (DOSAGE FORM: UNSPECIFIED)
     Route: 065
  8. MOXIFLOXACIN HYDROCHLORIDE [Suspect]
     Active Substance: MOXIFLOXACIN HYDROCHLORIDE
     Indication: Pulmonary tuberculosis
     Dosage: 400 MG (1 DAY)
     Route: 065
  9. AMIKACIN [Suspect]
     Active Substance: AMIKACIN
     Indication: Pulmonary tuberculosis
     Dosage: 500 MG, QD (DOSAGE FORM: UNSPECIFIED)
     Route: 065
  10. AMIKACIN [Suspect]
     Active Substance: AMIKACIN
     Indication: Antibiotic prophylaxis
     Dosage: 600 MG, Q48H (DOSAGE FORM: UNSPECIFIED)
     Route: 065
  11. BEDAQUILINE [Suspect]
     Active Substance: BEDAQUILINE
     Indication: Pulmonary tuberculosis
     Dosage: 600 MG, QW
     Route: 065
     Dates: start: 20150314
  12. BEDAQUILINE [Suspect]
     Active Substance: BEDAQUILINE
     Indication: Tuberculosis
     Dosage: 600 MG, QW
     Route: 065
     Dates: start: 20150323
  13. CYCLOSERINE [Suspect]
     Active Substance: CYCLOSERINE
     Indication: Pulmonary tuberculosis
     Dosage: 250 MG (DOSAGE FORM: UNSPECIFIED)
     Route: 065
  14. CYCLOSERINE [Suspect]
     Active Substance: CYCLOSERINE
     Indication: Antibiotic prophylaxis
     Dosage: 500 MG, BID (DOSAGE FORM: UNSPECIFIED)
     Route: 065
  15. PARA-AMINOSALICYLIC ACID [Suspect]
     Active Substance: AMINOSALICYLIC ACID
     Indication: Pulmonary tuberculosis
     Dosage: UNK
     Route: 065
  16. DELAMANID [Suspect]
     Active Substance: DELAMANID
     Indication: Pulmonary tuberculosis
     Dosage: DOSAGE FORM: UNSPECIFIED
     Route: 065
  17. AMINOSALICYLATE SODIUM [Suspect]
     Active Substance: AMINOSALICYLATE SODIUM
     Indication: Antibiotic prophylaxis
     Dosage: 1 DOSAGE FORM, QD (DOSAGE FORM: UNSPECIFIED, 1 BOTTLE)
     Route: 065
  18. AMINOSALICYLATE SODIUM [Suspect]
     Active Substance: AMINOSALICYLATE SODIUM
     Dosage: 11.82 G, QD (DOSAGE FORM: UNSPECIFIED)
     Route: 065
  19. PASER [Suspect]
     Active Substance: AMINOSALICYLIC ACID
     Indication: Antibiotic prophylaxis
     Dosage: DOSAGE FORM: UNSPECIFIED
     Route: 065
  20. PYRAZINAMIDE [Suspect]
     Active Substance: PYRAZINAMIDE
     Indication: Antibiotic prophylaxis
     Dosage: DOSAGE FORM: UNSPECIFIED
     Route: 065
  21. AMINOSALICYLIC ACID [Suspect]
     Active Substance: AMINOSALICYLIC ACID
     Indication: Antibiotic prophylaxis
     Dosage: 150 MG/KG, QD (DOSAGE FORM: UNSPECIFIED)
     Route: 065
  22. TRECATOR [Suspect]
     Active Substance: ETHIONAMIDE
     Indication: Antibiotic prophylaxis
     Dosage: 250 MG, QD (DOSAGE FORM: UNSPECIFIED)
     Route: 065
  23. SERETIDE [Concomitant]
     Active Substance: FLUTICASONE PROPIONATE\SALMETEROL XINAFOATE
     Indication: Product used for unknown indication
     Dosage: DOSAGE FORM: UNSPECIFIED
     Route: 065
  24. FOLIC ACID [Concomitant]
     Active Substance: FOLIC ACID
     Indication: Product used for unknown indication
     Dosage: 5 MG (DOSAGE FORM: UNSPECIFIED)
     Route: 065
  25. PYRIDOXINE [Concomitant]
     Active Substance: PYRIDOXINE
     Indication: Product used for unknown indication
     Dosage: DOSAGE FORM: UNSPECIFIED
     Route: 065
  26. DAFALGAN [Concomitant]
     Active Substance: ACETAMINOPHEN
     Indication: Product used for unknown indication
     Dosage: DOSAGE FORM: UNSPECIFIED
     Route: 065
  27. PHLOROGLUCINOL [Concomitant]
     Active Substance: PHLOROGLUCINOL
     Indication: Product used for unknown indication
     Dosage: DOSAGE FORM: UNSPECIFIED
     Route: 065
  28. MAGNESPASMYL [Concomitant]
     Indication: Product used for unknown indication
     Dosage: DOSAGE FORM: UNSPECIFIED
     Route: 065
  29. CETORNAN [Concomitant]
     Indication: Product used for unknown indication
     Dosage: 10 G (DOSAGE FORM: UNSPECIFIED)
     Route: 065
  30. ALBUTEROL [Concomitant]
     Active Substance: ALBUTEROL
     Indication: Product used for unknown indication
     Dosage: DOSAGE FORM: UNSPECIFIED
     Route: 065
  31. RANITIDINE HYDROCHLORIDE [Concomitant]
     Active Substance: RANITIDINE HYDROCHLORIDE
     Indication: Product used for unknown indication
     Dosage: DOSAGE FORM: UNSPECIFIED
     Route: 065
  32. DIMETANE [Concomitant]
     Active Substance: BROMPHENIRAMINE MALEATE
     Indication: Product used for unknown indication
     Dosage: DOSAGE FORM: UNSPECIFIED
     Route: 065
  33. FERROUS SULFATE [Concomitant]
     Active Substance: FERROUS SULFATE
     Indication: Product used for unknown indication
     Dosage: DOSAGE FORM: UNSPECIFIED
     Route: 065
  34. PRINCI-B [Concomitant]
     Indication: Product used for unknown indication
     Dosage: DOSAGE FORM: UNSPECIFIED
     Route: 065
  35. ZOLPIDEM TARTRATE [Concomitant]
     Active Substance: ZOLPIDEM TARTRATE
     Indication: Product used for unknown indication
     Dosage: 5 MG (DOSAGE FORM: UNSPECIFIED)
     Route: 065
  36. CETYLPYRIDINIUM CHLORIDE\LYSOZYME HYDROCHLORIDE [Concomitant]
     Active Substance: CETYLPYRIDINIUM CHLORIDE\LYSOZYME HYDROCHLORIDE
     Indication: Product used for unknown indication
     Dosage: DOSAGE FORM: UNSPECIFIED
     Route: 065
  37. PRIMPERAN [Concomitant]
     Active Substance: METOCLOPRAMIDE HYDROCHLORIDE
     Indication: Product used for unknown indication
     Dosage: 10 MG (DOSAGE FORM: UNSPECIFIED)
     Route: 065

REACTIONS (10)
  - Neuropathy peripheral [Unknown]
  - Osteonecrosis [Unknown]
  - Tuberculosis [Unknown]
  - Electrocardiogram repolarisation abnormality [Unknown]
  - Polyneuropathy [Unknown]
  - Off label use [Unknown]
  - Arthritis [Unknown]
  - Electrocardiogram QT prolonged [Recovered/Resolved]
  - Malaise [Unknown]
  - Hypotension [Unknown]

NARRATIVE: CASE EVENT DATE: 20150501
